FAERS Safety Report 23397779 (Version 2)
Quarter: 2024Q1

REPORT INFORMATION
  Report Type: Spontaneous
  Country: IN (occurrence: IN)
  Receive Date: 20240112
  Receipt Date: 20240130
  Transmission Date: 20240410
  Serious: Yes (Other)
  Sender: FDA-Public Use
  Company Number: IN-PFIZER INC-2021800738

PATIENT
  Age: 70 Year
  Sex: Male
  Weight: 92 kg

DRUGS (5)
  1. DACOMITINIB [Suspect]
     Active Substance: DACOMITINIB
     Indication: Non-small cell lung cancer metastatic
     Dosage: 30 MG, 1X/DAY
     Route: 048
     Dates: start: 20210227
  2. DACOMITINIB [Suspect]
     Active Substance: DACOMITINIB
     Dosage: 5 DAYS ON 2 DAYS OFF
     Route: 048
     Dates: start: 20210303
  3. DACOMITINIB [Suspect]
     Active Substance: DACOMITINIB
     Dosage: 30 MG, 1X/DAY
     Route: 048
     Dates: start: 202103, end: 202304
  4. DACOMITINIB [Suspect]
     Active Substance: DACOMITINIB
     Dosage: 30 MG, 1X/DAY
     Route: 048
  5. UPRISE D3 [Concomitant]
     Dosage: UNK

REACTIONS (22)
  - Second primary malignancy [Recovering/Resolving]
  - Small cell lung cancer [Recovering/Resolving]
  - Neoplasm progression [Unknown]
  - Mouth ulceration [Not Recovered/Not Resolved]
  - Paronychia [Unknown]
  - Dry mouth [Unknown]
  - White blood cell count abnormal [Unknown]
  - Thyroxine abnormal [Unknown]
  - Blood glucose abnormal [Unknown]
  - Pulmonary septal thickening [Unknown]
  - Pleural disorder [Unknown]
  - Furuncle [Not Recovered/Not Resolved]
  - Dry skin [Not Recovered/Not Resolved]
  - Nail disorder [Not Recovered/Not Resolved]
  - Skin irritation [Not Recovered/Not Resolved]
  - Diarrhoea [Not Recovered/Not Resolved]
  - Constipation [Not Recovered/Not Resolved]
  - Cough [Not Recovered/Not Resolved]
  - Dry eye [Unknown]
  - Muscle spasms [Unknown]
  - Off label use [Unknown]
  - Product use issue [Unknown]

NARRATIVE: CASE EVENT DATE: 20210101
